FAERS Safety Report 14240931 (Version 3)
Quarter: 2018Q1

REPORT INFORMATION
  Report Type: Report from Study
  Country: IL (occurrence: IL)
  Receive Date: 20171130
  Receipt Date: 20180212
  Transmission Date: 20180508
  Serious: Yes (Hospitalization, Other)
  Sender: FDA-Public Use
  Company Number: IL-ACTELION-A-NJ2017-163373

PATIENT
  Age: 71 Year
  Sex: Female

DRUGS (7)
  1. BOSENTAN. [Concomitant]
     Active Substance: BOSENTAN
     Indication: PULMONARY ARTERIAL HYPERTENSION
  2. PRADAXA [Concomitant]
     Active Substance: DABIGATRAN ETEXILATE MESYLATE
     Dosage: UNK
     Dates: start: 201305
  3. VENOFER [Concomitant]
     Active Substance: IRON SUCROSE
     Indication: IRON DEFICIENCY ANAEMIA
  4. VENTAVIS [Suspect]
     Active Substance: ILOPROST
     Dosage: 4 INHALATIONS/DAY
     Route: 055
  5. AEROVENT [Concomitant]
  6. VENTAVIS [Suspect]
     Active Substance: ILOPROST
     Indication: PULMONARY HYPERTENSION
     Dosage: 4 -5 INHALATIONS/DAY
     Route: 055
     Dates: start: 20150217, end: 201604
  7. PREDNISONE. [Suspect]
     Active Substance: PREDNISONE
     Indication: PRODUCT USED FOR UNKNOWN INDICATION
     Route: 065

REACTIONS (27)
  - Respiratory disorder [Recovered/Resolved]
  - Fall [Recovered/Resolved]
  - Atrial fibrillation [Unknown]
  - Lung disorder [Recovered/Resolved]
  - Wheezing [Unknown]
  - Pneumonia [Recovered/Resolved]
  - Pain [Recovered/Resolved]
  - Productive cough [Recovered/Resolved]
  - Hypopnoea [Unknown]
  - Pulmonary congestion [Unknown]
  - Ventricular arrhythmia [Unknown]
  - Somnolence [Recovered/Resolved]
  - Pyrexia [Recovered/Resolved]
  - Inappropriate schedule of drug administration [Unknown]
  - Dyspnoea [Unknown]
  - Skin atrophy [Unknown]
  - Respiratory arrest [Recovered/Resolved]
  - Compression fracture [Recovered/Resolved]
  - Cardiac failure [Unknown]
  - Oxygen saturation decreased [Recovered/Resolved]
  - Pleural effusion [Unknown]
  - Underdose [Unknown]
  - Loss of consciousness [Recovered/Resolved]
  - Haematoma [Unknown]
  - Leukocytosis [Recovered/Resolved]
  - Malaise [Recovering/Resolving]
  - Pallor [Recovering/Resolving]

NARRATIVE: CASE EVENT DATE: 201601
